FAERS Safety Report 8435459-6 (Version None)
Quarter: 2012Q2

REPORT INFORMATION
  Report Type: 
  Country: None (occurrence: None)
  Receive Date: 20120614
  Receipt Date: 20120608
  Transmission Date: 20120825
  Serious: Yes (Hospitalization, Other)
  Sender: FDA-Public Use
  Company Number: GB-PFIZER INC-2012139522

PATIENT
  Age: 13 Year
  Sex: Male

DRUGS (3)
  1. LEVOTHYROXINE SODIUM [Concomitant]
     Dosage: 50 UG, 1X/DAY
  2. GENOTROPIN [Suspect]
     Indication: GROWTH HORMONE DEFICIENCY
     Dosage: 1.2 MG, 1X/DAY DAILY
     Route: 058
     Dates: start: 20081205
  3. PENICILLIN V [Concomitant]
     Dosage: 250 MG, 1X/DAY

REACTIONS (5)
  - HYDROCEPHALUS [None]
  - CRANIAL NERVE PALSIES MULTIPLE [None]
  - HAEMANGIOMA [None]
  - CRANIAL NERVE PARALYSIS [None]
  - EYELID PTOSIS [None]
